FAERS Safety Report 12988731 (Version 2)
Quarter: 2016Q4

REPORT INFORMATION
  Report Type: Spontaneous
  Country: US (occurrence: US)
  Receive Date: 20161130
  Receipt Date: 20161225
  Transmission Date: 20170207
  Serious: No
  Sender: FDA-Public Use
  Company Number: US-TAIHO ONCOLOGY INC-EU-2016-03078

PATIENT
  Age: 83 Year
  Sex: Male

DRUGS (6)
  1. LONSURF [Suspect]
     Active Substance: TIPIRACIL HYDROCHLORIDE\TRIFLURIDINE
     Indication: RECTAL CANCER
     Route: 048
     Dates: start: 20160923
  2. IRON [Concomitant]
     Active Substance: IRON
     Dosage: NI
  3. LISINOPRIL. [Concomitant]
     Active Substance: LISINOPRIL
     Dosage: NI
  4. LANTUS [Suspect]
     Active Substance: INSULIN GLARGINE
     Dosage: NI
  5. ATENOLOL. [Concomitant]
     Active Substance: ATENOLOL
     Dosage: NI
  6. AMLODIPINE [Concomitant]
     Active Substance: AMLODIPINE BESYLATE
     Dosage: NI

REACTIONS (2)
  - Inappropriate schedule of drug administration [Unknown]
  - No adverse event [Unknown]

NARRATIVE: CASE EVENT DATE: 201611
